FAERS Safety Report 21617239 (Version 1)
Quarter: 2022Q4

REPORT INFORMATION
  Report Type: Report from Study
  Country: US (occurrence: US)
  Receive Date: 20221118
  Receipt Date: 20221118
  Transmission Date: 20230113
  Serious: Yes (Other)
  Sender: FDA-Public Use
  Company Number: US-ABBVIE-4205547

PATIENT
  Age: 43 Year
  Sex: Female

DRUGS (1)
  1. RINVOQ [Suspect]
     Active Substance: UPADACITINIB
     Indication: Product used for unknown indication
     Route: 048

REACTIONS (4)
  - Radiculopathy [Unknown]
  - Suture related complication [Unknown]
  - Rheumatoid arthritis [Not Recovered/Not Resolved]
  - Incision site discharge [Unknown]

NARRATIVE: CASE EVENT DATE: 20221101
